FAERS Safety Report 4475332-1 (Version None)
Quarter: 2004Q4

REPORT INFORMATION
  Report Type: 
  Country: None (occurrence: None)
  Receive Date: 20041015
  Receipt Date: 20041011
  Transmission Date: 20050328
  Serious: Yes (Congenital Anomaly)
  Sender: FDA-Public Use
  Company Number: 200420083GDDC

PATIENT
  Sex: 0

DRUGS (3)
  1. LANTUS [Suspect]
     Dosage: DOSE: 10-12; DOSE UNIT: UNITS
     Route: 015
     Dates: start: 20030701
  2. HUMALOG [Suspect]
     Dosage: DOSE: 6-12; DOSE UNIT: UNITS
     Route: 015
     Dates: start: 20030701
  3. SALBUTAMOL [Concomitant]
     Route: 015

REACTIONS (3)
  - CLEFT PALATE [None]
  - CONGENITAL ORAL MALFORMATION [None]
  - MATERNAL DRUGS AFFECTING FOETUS [None]
